FAERS Safety Report 5119662-9 (Version None)
Quarter: 2006Q4

REPORT INFORMATION
  Report Type: 
  Country: None (occurrence: None)
  Receive Date: 20061003
  Receipt Date: 20060914
  Transmission Date: 20070319
  Serious: Yes (Other)
  Sender: FDA-Public Use
  Company Number: US-ROCHE-463919

PATIENT
  Age: 87 Year
  Sex: Female
  Weight: 53.5 kg

DRUGS (3)
  1. BONIVA [Suspect]
     Indication: OSTEOPOROSIS
     Dosage: DOSING REGIMEN REPORTED AS 150 MG/MONTH.
     Route: 048
     Dates: start: 20060421
  2. UNKNOWN HYPERTENSION DRUG [Concomitant]
     Dosage: START DATE REPORTED AS YEARS.
     Route: 048
  3. 1 CONCOMITANT DRUG [Concomitant]
     Dosage: THERAPY START DATE REPORTED AS YEARS.
     Route: 048

REACTIONS (2)
  - FALL [None]
  - HAND FRACTURE [None]
